FAERS Safety Report 7454717-5 (Version None)
Quarter: 2011Q2

REPORT INFORMATION
  Report Type: 
  Country: None (occurrence: None)
  Receive Date: 20110503
  Receipt Date: 20100419
  Transmission Date: 20111010
  Serious: Yes (Other)
  Sender: FDA-Public Use
  Company Number: US-PFIZER INC-2009233336

PATIENT
  Sex: Female
  Weight: 61 kg

DRUGS (4)
  1. PREMARIN [Suspect]
     Indication: HORMONE REPLACEMENT THERAPY
     Dosage: UNK
     Dates: start: 19911201, end: 19920701
  2. PROVERA [Suspect]
     Indication: HORMONE REPLACEMENT THERAPY
     Dosage: 10 MG, UNK
     Route: 048
     Dates: start: 19911201, end: 19920701
  3. ESTRACE [Suspect]
     Indication: HORMONE REPLACEMENT THERAPY
     Dosage: 1 MG, UNK
     Dates: start: 19911201, end: 19920701
  4. MEDROXYPROGESTERONE ACETATE [Suspect]
     Indication: HORMONE REPLACEMENT THERAPY
     Dosage: UNK
     Route: 048
     Dates: start: 19911201, end: 19920701

REACTIONS (1)
  - ISCHAEMIC STROKE [None]
